FAERS Safety Report 23786510 (Version 1)
Quarter: 2024Q2

REPORT INFORMATION
  Report Type: Spontaneous
  Country: US (occurrence: US)
  Receive Date: 20240426
  Receipt Date: 20240426
  Transmission Date: 20240715
  Serious: No
  Sender: FDA-Public Use
  Company Number: US-TEVA-VS-3167731

PATIENT
  Age: 83 Year
  Sex: Male

DRUGS (2)
  1. CARVEDILOL [Suspect]
     Active Substance: CARVEDILOL
     Indication: Hypertension
     Dosage: ECLIPSED SHAPED, WHITE WITH TV/135?6.25 MG
     Route: 065
  2. CARVEDILOL [Suspect]
     Active Substance: CARVEDILOL
     Indication: Hypertension
     Dosage: ECLIPSED SHAPED, WHITE WITH TV/135?12.5 MG
     Route: 065

REACTIONS (2)
  - Chromaturia [Unknown]
  - Therapy change [Unknown]
